FAERS Safety Report 21764414 (Version 4)
Quarter: 2023Q2

REPORT INFORMATION
  Report Type: Report from Study
  Country: US (occurrence: US)
  Receive Date: 20221222
  Receipt Date: 20230414
  Transmission Date: 20230722
  Serious: No
  Sender: FDA-Public Use
  Company Number: US-002147023-NVSC2022US295751

PATIENT
  Age: 72 Year
  Sex: Female

DRUGS (2)
  1. ENTRESTO [Suspect]
     Active Substance: SACUBITRIL\VALSARTAN
     Indication: Product used for unknown indication
     Dosage: 1 DOSAGE FORM, BID
     Route: 065
     Dates: start: 20221212
  2. ENTRESTO [Suspect]
     Active Substance: SACUBITRIL\VALSARTAN
     Dosage: 1 DOSAGE FORM, QD (NEXT 2 DAYS)
     Route: 065

REACTIONS (10)
  - Erythema [Recovered/Resolved]
  - Weight increased [Unknown]
  - Dyspnoea [Unknown]
  - Palpitations [Not Recovered/Not Resolved]
  - COVID-19 [Unknown]
  - Feeling abnormal [Unknown]
  - Underdose [Recovered/Resolved]
  - Asthenia [Unknown]
  - Fatigue [Unknown]
  - Inappropriate schedule of product administration [Recovered/Resolved]

NARRATIVE: CASE EVENT DATE: 20221201
